FAERS Safety Report 7671832-1 (Version None)
Quarter: 2011Q3

REPORT INFORMATION
  Report Type: 
  Country: None (occurrence: None)
  Receive Date: 20110809
  Receipt Date: 20110801
  Transmission Date: 20111222
  Serious: Yes (Other)
  Sender: FDA-Public Use
  Company Number: JP-ROCHE-794591

PATIENT
  Age: 73 Year
  Sex: Male
  Weight: 60 kg

DRUGS (7)
  1. ALOXI [Concomitant]
     Route: 042
     Dates: start: 20110411, end: 20110705
  2. XELODA [Suspect]
     Indication: COLON CANCER
     Dosage: FIVE COURSE, XELODA 300
     Route: 048
     Dates: start: 20110411, end: 20110705
  3. GLUCOSE [Concomitant]
     Route: 042
  4. DECADRON [Concomitant]
     Route: 048
  5. OXALIPLATIN [Suspect]
     Indication: COLON CANCER
     Dosage: FIVE COURSE
     Route: 042
     Dates: start: 20110411, end: 20110705
  6. AVASTIN [Suspect]
     Indication: COLON CANCER
     Dosage: FIVE COURSE
     Route: 042
     Dates: start: 20110411, end: 20110705
  7. GOSHAJINKIGAN [Concomitant]
     Dosage: POWDER:GRANULATED
     Route: 048

REACTIONS (1)
  - CEREBRAL INFARCTION [None]
